FAERS Safety Report 5538750-6 (Version None)
Quarter: 2007Q4

REPORT INFORMATION
  Report Type: 
  Country: None (occurrence: None)
  Receive Date: 20071208
  Receipt Date: 20070323
  Transmission Date: 20080405
  Serious: No
  Sender: FDA-Public Use
  Company Number: US-AMGEN-KDL216382

PATIENT
  Sex: Female

DRUGS (3)
  1. ENBREL [Suspect]
     Indication: RHEUMATOID ARTHRITIS
     Route: 058
     Dates: start: 20040101
  2. METHOTREXATE [Concomitant]
     Route: 048
     Dates: start: 19890101
  3. PLAQUENIL [Concomitant]
     Route: 048
     Dates: start: 19890101

REACTIONS (3)
  - COUGH [None]
  - HEADACHE [None]
  - SINUSITIS [None]
